FAERS Safety Report 24172400 (Version 1)
Quarter: 2024Q3

REPORT INFORMATION
  Report Type: Spontaneous
  Country: CA (occurrence: CA)
  Receive Date: 20240805
  Receipt Date: 20240805
  Transmission Date: 20241016
  Serious: Yes (Other)
  Sender: ROCHE
  Company Number: CA-ROCHE-10000037264

PATIENT
  Age: 19 Year
  Sex: Male

DRUGS (1)
  1. RITUXIMAB [Suspect]
     Active Substance: RITUXIMAB
     Indication: Product used for unknown indication
     Dosage: MOST RECENT DOSE RECEIVED ON JULY 2023. LAST DOSE 18/JAN/24
     Route: 065

REACTIONS (2)
  - Relapsing-remitting multiple sclerosis [Unknown]
  - Sinusitis [Unknown]

NARRATIVE: CASE EVENT DATE: 20230214
